FAERS Safety Report 9264173 (Version 3)
Quarter: 2013Q2

REPORT INFORMATION
  Report Type: Spontaneous
  Country: BR (occurrence: BR)
  Receive Date: 20130430
  Receipt Date: 20130613
  Transmission Date: 20140414
  Serious: Yes (Hospitalization, Other)
  Sender: FDA-Public Use
  Company Number: BR-PFIZER INC-2013130105

PATIENT
  Age: 59 Year
  Sex: Female
  Weight: 80 kg

DRUGS (3)
  1. DETRUSITOL LA [Suspect]
     Indication: URINARY INCONTINENCE
     Dosage: 1 CAPSULE OF 4 MG, 1X/DAY (CONTINUOUS USE)
     Route: 048
     Dates: start: 20130325
  2. ATENOLOL [Concomitant]
     Indication: HYPERTENSION
     Dosage: 2 TABLETS OF 25 MG DAILY
     Dates: start: 2010
  3. NATIFA [Concomitant]
     Indication: HORMONE REPLACEMENT THERAPY
     Dosage: 1 TABLET DAILY
     Dates: start: 2011

REACTIONS (2)
  - Urinary incontinence [Unknown]
  - Muscle disorder [Unknown]
